FAERS Safety Report 8295306-2 (Version None)
Quarter: 2012Q2

REPORT INFORMATION
  Report Type: 
  Country: None (occurrence: None)
  Receive Date: 20120416
  Receipt Date: 20120331
  Transmission Date: 20120825
  Serious: Yes (Other)
  Sender: FDA-Public Use
  Company Number: 2012AP000954

PATIENT
  Age: 65 Year
  Sex: Male

DRUGS (2)
  1. ZOLPIDEM TARTRATE [Suspect]
     Indication: INSOMNIA
     Dosage: 2 TAB;1X;10MG;
  2. PREDNISONE TAB [Concomitant]

REACTIONS (6)
  - STARING [None]
  - AMNESIA [None]
  - WRONG DRUG ADMINISTERED [None]
  - AUTOMATISM [None]
  - ACCIDENTAL EXPOSURE [None]
  - SLOW RESPONSE TO STIMULI [None]
